FAERS Safety Report 18121952 (Version 2)
Quarter: 2020Q3

REPORT INFORMATION
  Report Type: Spontaneous
  Country: IT (occurrence: IT)
  Receive Date: 20200806
  Receipt Date: 20200903
  Transmission Date: 20201103
  Serious: Yes (Death, Other)
  Sender: FDA-Public Use
  Company Number: IT-AUROBINDO-AUR-APL-2020-037841

PATIENT
  Age: 7 Decade
  Sex: Female

DRUGS (14)
  1. OFATUMUMAB [Suspect]
     Active Substance: OFATUMUMAB
     Indication: CHRONIC LYMPHOCYTIC LEUKAEMIA
     Dosage: 300 MILLIGRAM
     Route: 065
  2. FLUDARABINE [Suspect]
     Active Substance: FLUDARABINE PHOSPHATE
     Indication: CHRONIC LYMPHOCYTIC LEUKAEMIA
     Dosage: 25 MILLIGRAM/SQ. METER
     Route: 065
  3. CARMUSTINE. [Suspect]
     Active Substance: CARMUSTINE
     Indication: IMMUNOSUPPRESSANT DRUG THERAPY
     Dosage: UNK
     Route: 065
  4. RITUXIMAB. [Suspect]
     Active Substance: RITUXIMAB
     Indication: CHRONIC LYMPHOCYTIC LEUKAEMIA
     Dosage: 375 MILLIGRAM/SQ. METER (RECEIVED 5 COURSES OUT OF 8)
     Route: 065
     Dates: start: 201510, end: 201512
  5. CYTARABINE. [Suspect]
     Active Substance: CYTARABINE
     Indication: IMMUNOSUPPRESSANT DRUG THERAPY
     Dosage: UNK
     Route: 065
  6. BENDAMUSTINE [Suspect]
     Active Substance: BENDAMUSTINE
     Indication: CHRONIC LYMPHOCYTIC LEUKAEMIA
     Route: 065
  7. IDELALISIB [Suspect]
     Active Substance: IDELALISIB
     Dosage: 100 MILLIGRAM, 0.5 DAY (RESTARTED AT A REDUCED DOSE)
     Route: 048
  8. IDELALISIB [Suspect]
     Active Substance: IDELALISIB
     Dosage: 300 MILLIGRAM, DAILY (150 MILLIGRAM, 0.5 DAY) AS MONOTHERAPY
     Route: 048
     Dates: start: 201512
  9. IDELALISIB [Suspect]
     Active Substance: IDELALISIB
     Dosage: 200 MILLIGRAM, DAILY (RESTARTED AT A REDUCED DOSE)
     Route: 048
  10. OFATUMUMAB [Suspect]
     Active Substance: OFATUMUMAB
     Dosage: 1 GRAM
     Route: 065
  11. MELPHALAN. [Suspect]
     Active Substance: MELPHALAN
     Indication: IMMUNOSUPPRESSANT DRUG THERAPY
     Dosage: UNK
     Route: 065
  12. CYCLOPHOSPHAMIDE. [Suspect]
     Active Substance: CYCLOPHOSPHAMIDE
     Indication: CHRONIC LYMPHOCYTIC LEUKAEMIA
     Dosage: 250 MILLIGRAM/SQ. METER
     Route: 065
  13. ETOPOSIDE. [Suspect]
     Active Substance: ETOPOSIDE
     Indication: IMMUNOSUPPRESSANT DRUG THERAPY
     Dosage: UNK
     Route: 065
  14. IDELALISIB [Suspect]
     Active Substance: IDELALISIB
     Indication: CHRONIC LYMPHOCYTIC LEUKAEMIA
     Dosage: 150 MILLIGRAM, TWO TIMES A DAY (300 MILLIGRAM, ONCE A DAY)
     Route: 048
     Dates: end: 201609

REACTIONS (9)
  - Ataxia [Unknown]
  - Colitis [Recovered/Resolved]
  - Immune reconstitution inflammatory syndrome [Unknown]
  - Rash [Unknown]
  - Progressive multifocal leukoencephalopathy [Fatal]
  - Hemianopia [Unknown]
  - Status epilepticus [Fatal]
  - Muscular weakness [Unknown]
  - Anosognosia [Unknown]

NARRATIVE: CASE EVENT DATE: 201609
